FAERS Safety Report 16540566 (Version 1)
Quarter: 2019Q3

REPORT INFORMATION
  Report Type: Spontaneous
  Country: BG (occurrence: BG)
  Receive Date: 20190707
  Receipt Date: 20190707
  Transmission Date: 20191004
  Serious: Yes (Life-Threatening, Disabling)
  Sender: FDA-Public Use
  Company Number: None

PATIENT
  Age: 40 Year
  Sex: Male
  Weight: 165 kg

DRUGS (1)
  1. PENESTER (FINASTERIDE) [Suspect]
     Active Substance: FINASTERIDE
     Indication: ANDROGENETIC ALOPECIA
     Dosage: ?          QUANTITY:1 TABLET(S);?
     Route: 048

REACTIONS (26)
  - Perineal pain [None]
  - Urinary incontinence [None]
  - Disturbance in attention [None]
  - Mobility decreased [None]
  - Erectile dysfunction [None]
  - Dry skin [None]
  - Testicular pain [None]
  - Chest discomfort [None]
  - Orgasm abnormal [None]
  - Penis disorder [None]
  - Anhedonia [None]
  - Apathy [None]
  - Suicidal ideation [None]
  - Semen viscosity decreased [None]
  - Penile size reduced [None]
  - Urine flow decreased [None]
  - Testicular atrophy [None]
  - Penile pain [None]
  - Arrhythmia [None]
  - Libido decreased [None]
  - Palpitations [None]
  - Depression [None]
  - Arthralgia [None]
  - Urinary retention [None]
  - Alopecia [None]
  - Loss of libido [None]

NARRATIVE: CASE EVENT DATE: 20160927
